FAERS Safety Report 4318409-3 (Version None)
Quarter: 2004Q1

REPORT INFORMATION
  Report Type: 
  Country: None (occurrence: None)
  Receive Date: 20040315
  Receipt Date: 20040308
  Transmission Date: 20041129
  Serious: Yes (Life-Threatening)
  Sender: FDA-Public Use
  Company Number: 2004AP01447

PATIENT
  Age: 74 Year
  Sex: Male

DRUGS (3)
  1. DIPRIVAN [Suspect]
     Dates: start: 20040218, end: 20040218
  2. GASTER [Concomitant]
  3. ANTIBIOTICS [Concomitant]

REACTIONS (3)
  - CARDIAC DISORDER [None]
  - CARDIOMYOPATHY [None]
  - ELECTROCARDIOGRAM ST SEGMENT ABNORMAL [None]
